FAERS Safety Report 8615465-9 (Version None)
Quarter: 2012Q3

REPORT INFORMATION
  Report Type: 
  Country: None (occurrence: None)
  Receive Date: 20120823
  Receipt Date: 20120813
  Transmission Date: 20120928
  Serious: Yes (Disabling, Other)
  Sender: FDA-Public Use
  Company Number: US-ELI_LILLY_AND_COMPANY-US201208004110

PATIENT
  Sex: Male

DRUGS (2)
  1. REGULAR ILETIN 2 [Suspect]
     Dosage: UNK, UNKNOWN
  2. HUMALOG [Suspect]
     Indication: DIABETES MELLITUS
     Dosage: 15 U, QD

REACTIONS (1)
  - CEREBROVASCULAR ACCIDENT [None]
